FAERS Safety Report 24850025 (Version 1)
Quarter: 2025Q1

REPORT INFORMATION
  Report Type: Spontaneous
  Country: US (occurrence: None)
  Receive Date: 20250115
  Receipt Date: 20250115
  Transmission Date: 20250409
  Serious: Yes (Other)
  Sender: FDA-CTU
  Company Number: None

PATIENT
  Age: 68 Year
  Sex: Female
  Weight: 86.5 kg

DRUGS (1)
  1. UBRELVY [Suspect]
     Active Substance: UBROGEPANT
     Indication: Migraine
     Route: 048
     Dates: start: 20250113, end: 20250113

REACTIONS (1)
  - Hallucination, visual [None]

NARRATIVE: CASE EVENT DATE: 20250113
